FAERS Safety Report 10914353 (Version 1)
Quarter: 2015Q1

REPORT INFORMATION
  Report Type: Spontaneous
  Country: ES (occurrence: ES)
  Receive Date: 20150313
  Receipt Date: 20150313
  Transmission Date: 20150721
  Serious: Yes (Other)
  Sender: FDA-Public Use
  Company Number: ES-BAUSCH-BL-2015-003539

PATIENT
  Age: 50 Year
  Sex: Female
  Weight: 50.8 kg

DRUGS (1)
  1. ZYCLARA [Suspect]
     Active Substance: IMIQUIMOD
     Indication: PHOTODERMATOSIS
     Dosage: SEP. DOSAGES
     Route: 061
     Dates: start: 20141217, end: 20141225

REACTIONS (12)
  - Application site scar [Unknown]
  - Headache [Recovered/Resolved]
  - Off label use [Recovered/Resolved]
  - Fatigue [Recovered/Resolved]
  - Nausea [Recovered/Resolved]
  - Back pain [Recovered/Resolved]
  - Application site pain [Unknown]
  - Weight decreased [Unknown]
  - Purulence [Unknown]
  - Wound infection [Unknown]
  - Decreased appetite [Recovered/Resolved]
  - Lethargy [Recovered/Resolved]

NARRATIVE: CASE EVENT DATE: 20141217
